FAERS Safety Report 6157518-3 (Version None)
Quarter: 2009Q2

REPORT INFORMATION
  Report Type: 
  Country: None (occurrence: None)
  Receive Date: 20090416
  Receipt Date: 20090413
  Transmission Date: 20091009
  Serious: Yes (Hospitalization, Other)
  Sender: FDA-Public Use
  Company Number: US-ALLERGAN-0901256US

PATIENT
  Sex: Male
  Weight: 96.145 kg

DRUGS (7)
  1. BOTOX [Suspect]
     Indication: MUSCLE CONTRACTURE
     Dosage: 300 UNITS, SINGLE
     Route: 030
     Dates: start: 20081022, end: 20081022
  2. BOTOX [Suspect]
     Indication: MUSCLE SPASTICITY
  3. BOTOX [Suspect]
     Indication: PAIN
  4. BOTOX [Suspect]
     Indication: CEREBROVASCULAR ACCIDENT
  5. BOTOX [Suspect]
  6. BOTOX [Suspect]
     Indication: MUSCLE SPASMS
  7. BOTOX [Suspect]

REACTIONS (6)
  - DYSPNOEA [None]
  - HYPOTENSION [None]
  - PYREXIA [None]
  - TREMOR [None]
  - URINARY TRACT INFECTION [None]
  - UROSEPSIS [None]
